FAERS Safety Report 25737632 (Version 1)
Quarter: 2025Q3

REPORT INFORMATION
  Report Type: Report from Study
  Country: GB (occurrence: GB)
  Receive Date: 20250828
  Receipt Date: 20250828
  Transmission Date: 20251021
  Serious: Yes (Death)
  Sender: ABBVIE
  Company Number: GB-ABBVIE-6436675

PATIENT
  Age: 71 Year
  Sex: Male

DRUGS (1)
  1. SKYRIZI [Suspect]
     Active Substance: RISANKIZUMAB-RZAA
     Indication: Psoriasis
     Dosage: FORM STRENGTH- 150MG/1ML. DOSE FORM- SOLUTION FOR INJECTION PRE-FILLED PENS. 1 PRE-FILLED DISPOSA...
     Route: 058
     Dates: start: 20241122

REACTIONS (1)
  - Death [Fatal]

NARRATIVE: CASE EVENT DATE: 20250823
